FAERS Safety Report 17640092 (Version 1)
Quarter: 2020Q2

REPORT INFORMATION
  Report Type: Spontaneous
  Country: US (occurrence: US)
  Receive Date: 20200407
  Receipt Date: 20200407
  Transmission Date: 20200713
  Serious: No
  Sender: FDA-Public Use
  Company Number: US-GALDERMA-US2020004138

PATIENT
  Age: 70 Year
  Sex: Female

DRUGS (7)
  1. GRAPE SEED OIL [Concomitant]
     Indication: THERAPEUTIC SKIN CARE TOPICAL
     Route: 065
  2. BABY SHAMPOO [Concomitant]
     Indication: THERAPEUTIC SKIN CARE TOPICAL
     Route: 065
  3. OLIVE OIL [Concomitant]
     Active Substance: OLIVE OIL
     Indication: THERAPEUTIC SKIN CARE TOPICAL
     Route: 065
  4. YES PROBIOTIC WITH BLUEBERRIES AND YOGURT [Concomitant]
     Indication: PRODUCT USED FOR UNKNOWN INDICATION
     Route: 065
  5. DOVE SOAP [Concomitant]
     Indication: THERAPEUTIC SKIN CARE TOPICAL
     Route: 065
  6. DIFFERIN GEL [Suspect]
     Active Substance: ADAPALENE
     Indication: ACNE
     Dosage: 0.1%
     Route: 061
     Dates: start: 201911
  7. DIFFERIN DARK SPOT CORRECTING SERUM [Suspect]
     Active Substance: HYDROQUINONE
     Indication: SKIN HYPERPIGMENTATION
     Route: 061
     Dates: start: 202001

REACTIONS (3)
  - Inappropriate schedule of product administration [Recovered/Resolved]
  - Skin exfoliation [Not Recovered/Not Resolved]
  - Underdose [Recovered/Resolved]

NARRATIVE: CASE EVENT DATE: 201911
